FAERS Safety Report 12234032 (Version 2)
Quarter: 2016Q2

REPORT INFORMATION
  Report Type: Spontaneous
  Country: CA (occurrence: CA)
  Receive Date: 20160404
  Receipt Date: 20160504
  Transmission Date: 20160815
  Serious: No
  Sender: FDA-Public Use
  Company Number: CA-PFIZER INC-2015464383

PATIENT
  Age: 62 Year
  Sex: Female

DRUGS (1)
  1. SUTENT [Suspect]
     Active Substance: SUNITINIB MALATE
     Indication: OVARIAN CANCER METASTATIC
     Dosage: 50 MG, UNK
     Dates: end: 201603

REACTIONS (3)
  - Disease progression [Unknown]
  - Ovarian cancer metastatic [Unknown]
  - Product use issue [Unknown]
